FAERS Safety Report 6734745-5 (Version None)
Quarter: 2010Q2

REPORT INFORMATION
  Report Type: 
  Country: None (occurrence: None)
  Receive Date: 20100519
  Receipt Date: 20100519
  Transmission Date: 20101027
  Serious: No
  Sender: FDA-Public Use
  Company Number: None

PATIENT
  Age: 44 Year
  Sex: Male

DRUGS (1)
  1. LOSARTAN POTASSIUM [Suspect]
     Indication: HYPERTENSION
     Dosage: 100MG X1 TAB DAILY ORAL
     Route: 048
     Dates: start: 20100501, end: 20100505

REACTIONS (4)
  - DIPLOPIA [None]
  - DIZZINESS [None]
  - LETHARGY [None]
  - PRODUCT SUBSTITUTION ISSUE [None]
